FAERS Safety Report 4469510-5 (Version None)
Quarter: 2004Q3

REPORT INFORMATION
  Report Type: 
  Country: None (occurrence: None)
  Receive Date: 20040920
  Receipt Date: 20040614
  Transmission Date: 20050211
  Serious: Yes (Other)
  Sender: FDA-Public Use
  Company Number: PHEH2004US06528

PATIENT
  Age: 77 Year
  Sex: Female

DRUGS (4)
  1. ZOMETA [Suspect]
     Indication: METASTASES TO BONE
     Dosage: 4 MG MONTHLY, INTRAVENOUS
     Route: 042
     Dates: start: 20030910, end: 20040426
  2. DECADRON [Concomitant]
  3. TAXOTERE [Concomitant]
  4. XELODA [Concomitant]

REACTIONS (3)
  - ANAEMIA [None]
  - OSTEONECROSIS [None]
  - TOOTH EXTRACTION [None]
